FAERS Safety Report 10243538 (Version 2)
Quarter: 2014Q2

REPORT INFORMATION
  Report Type: Not Available
  Country: US (occurrence: US)
  Receive Date: 20140618
  Receipt Date: 20140618
  Transmission Date: 20141212
  Serious: No
  Sender: FDA-Public Use
  Company Number: US-LUPIN PHARMACEUTICALS INC.-E2B_00001069

PATIENT
  Age: 7 Year
  Sex: Female
  Weight: 29.06 kg

DRUGS (1)
  1. CEFADROXIL FOR ORAL SUSPENSION USP 500MG/5ML [Suspect]
     Indication: URINARY TRACT INFECTION
     Dates: start: 20130709

REACTIONS (2)
  - Retching [Recovered/Resolved]
  - Abdominal discomfort [Not Recovered/Not Resolved]
